FAERS Safety Report 19374521 (Version 1)
Quarter: 2021Q2

REPORT INFORMATION
  Report Type: Spontaneous
  Country: US (occurrence: US)
  Receive Date: 20210603
  Receipt Date: 20210603
  Transmission Date: 20210717
  Serious: No
  Sender: FDA-Public Use
  Company Number: US-SA-2021SA180299

PATIENT
  Age: 48 Year
  Sex: Male

DRUGS (1)
  1. DUPIXENT [Suspect]
     Active Substance: DUPILUMAB
     Indication: NASAL POLYPS
     Dosage: 300 MG, QOW
     Route: 058
     Dates: start: 20201222

REACTIONS (11)
  - Ear discomfort [Unknown]
  - Hyposmia [Unknown]
  - Facial pain [Unknown]
  - Hypogeusia [Unknown]
  - Condition aggravated [Unknown]
  - Snoring [Unknown]
  - Ear pain [Unknown]
  - Sinus disorder [Unknown]
  - Sleep apnoea syndrome [Unknown]
  - Nasal congestion [Unknown]
  - Facial discomfort [Unknown]
